FAERS Safety Report 6568374-3 (Version None)
Quarter: 2010Q1

REPORT INFORMATION
  Report Type: 
  Country: None (occurrence: None)
  Receive Date: 20100129
  Receipt Date: 20100119
  Transmission Date: 20100710
  Serious: Yes (Hospitalization)
  Sender: FDA-Public Use
  Company Number: 2010000275

PATIENT
  Age: 52 Year
  Sex: Female
  Weight: 65.7716 kg

DRUGS (5)
  1. ACTIQ [Suspect]
     Indication: PAIN
     Dosage: 3200 MCG (800 MCG,1 IN  6 HR),BU ; 4800 MCG (1200 MCG,1 IN 6 HR),BU
     Route: 002
     Dates: start: 20060101
  2. ACTIQ [Suspect]
     Indication: PAIN
     Dosage: 3200 MCG (800 MCG,1 IN  6 HR),BU ; 4800 MCG (1200 MCG,1 IN 6 HR),BU
     Route: 002
     Dates: start: 20060101
  3. OXYCODONE HCL [Concomitant]
  4. SOMA [Concomitant]
  5. XANAX [Concomitant]

REACTIONS (5)
  - DEHYDRATION [None]
  - FREQUENT BOWEL MOVEMENTS [None]
  - LOSS OF CONSCIOUSNESS [None]
  - RESPIRATORY DISORDER [None]
  - VOMITING [None]
